FAERS Safety Report 9808496 (Version 1)
Quarter: 2014Q1

REPORT INFORMATION
  Report Type: Spontaneous
  Country: US (occurrence: US)
  Receive Date: 20140110
  Receipt Date: 20140110
  Transmission Date: 20141002
  Serious: No
  Sender: FDA-Public Use
  Company Number: US-GILEAD-2011-0035062

PATIENT
  Age: 40 Year
  Sex: Male

DRUGS (2)
  1. VIREAD [Suspect]
     Indication: CHRONIC HEPATITIS B
  2. BARACLUDE [Concomitant]
     Indication: CHRONIC HEPATITIS B

REACTIONS (2)
  - Blood creatinine increased [Unknown]
  - Creatinine renal clearance decreased [Unknown]
